FAERS Safety Report 12681172 (Version 1)
Quarter: 2016Q3

REPORT INFORMATION
  Report Type: Report from Study
  Country: VE (occurrence: VE)
  Receive Date: 20160824
  Receipt Date: 20160824
  Transmission Date: 20161109
  Serious: Yes (Hospitalization)
  Sender: FDA-Public Use
  Company Number: PHHY2016VE114755

PATIENT
  Age: 13 Year
  Sex: Male

DRUGS (2)
  1. EXJADE [Suspect]
     Active Substance: DEFERASIROX
     Indication: IRON OVERLOAD
     Dosage: 500 MG, QD
     Route: 048
  2. HYDREA [Concomitant]
     Active Substance: HYDROXYUREA
     Indication: PAIN
     Dosage: 500 MG, QD
     Route: 065

REACTIONS (7)
  - Cardiovascular disorder [Unknown]
  - Swelling [Unknown]
  - Peripheral swelling [Unknown]
  - Bone pain [Unknown]
  - Malaise [Unknown]
  - Pyrexia [Unknown]
  - Disease recurrence [Unknown]

NARRATIVE: CASE EVENT DATE: 201606
